FAERS Safety Report 9605725 (Version 1)
Quarter: 2013Q4

REPORT INFORMATION
  Report Type: Spontaneous
  Country: GB (occurrence: GB)
  Receive Date: 20131008
  Receipt Date: 20131008
  Transmission Date: 20140711
  Serious: Yes (Death, Hospitalization, Other)
  Sender: FDA-Public Use
  Company Number: GB-TEVA-436617ISR

PATIENT
  Age: 53 Year
  Sex: Male

DRUGS (10)
  1. VENLAFAXINE [Suspect]
     Dosage: 300 MILLIGRAM DAILY;
  2. SEROQUEL [Suspect]
     Indication: BIPOLAR DISORDER
     Dosage: 300 MILLIGRAM DAILY;
     Route: 048
     Dates: start: 2010, end: 2012
  3. SEROQUEL [Suspect]
     Indication: BIPOLAR DISORDER
     Dosage: 300 MILLIGRAM DAILY;
     Route: 048
     Dates: start: 2012
  4. SEROQUEL [Suspect]
     Indication: BIPOLAR DISORDER
     Dosage: 1800 MILLIGRAM DAILY;
     Route: 048
  5. SEROQUEL [Suspect]
     Indication: BIPOLAR DISORDER
     Dosage: 600 MILLIGRAM DAILY;
     Route: 048
  6. LITHIUM [Concomitant]
  7. DIAZEPAM [Concomitant]
     Dosage: 15 MILLIGRAM DAILY;
  8. LAMOTRIGINE [Concomitant]
     Dosage: 75/100 MG DAILY
  9. PREGABALIN [Concomitant]
     Dosage: 150 MILLIGRAM DAILY;
  10. OMEPRAZOLE [Concomitant]

REACTIONS (14)
  - Overdose [Fatal]
  - Basal cell carcinoma [Recovered/Resolved]
  - Condition aggravated [Unknown]
  - Hallucination [Unknown]
  - Disinhibition [Unknown]
  - Paranoia [Unknown]
  - Agitation [Unknown]
  - Malaise [Unknown]
  - Contusion [Unknown]
  - Disturbance in attention [Unknown]
  - Injury [Unknown]
  - Vomiting [Unknown]
  - Drug withdrawal syndrome [Unknown]
  - Irritability [Unknown]
